FAERS Safety Report 6959579-8 (Version None)
Quarter: 2010Q3

REPORT INFORMATION
  Report Type: 
  Country: None (occurrence: None)
  Receive Date: 20100830
  Receipt Date: 20100830
  Transmission Date: 20110219
  Serious: Yes (Other)
  Sender: FDA-Public Use
  Company Number: 1022556-2010-00054

PATIENT
  Age: 19 Year
  Sex: Female

DRUGS (1)
  1. MEDICATED FOAM PAD WITH KNEE WRAP [Suspect]
     Indication: ARTHRALGIA
     Dosage: TOPICAL, ONCE
     Route: 061

REACTIONS (1)
  - APPLICATION SITE BURN [None]
